FAERS Safety Report 9464860 (Version 2)
Quarter: 2014Q4

REPORT INFORMATION
  Report Type: Spontaneous
  Country: US (occurrence: US)
  Receive Date: 20130819
  Receipt Date: 20141226
  Transmission Date: 20150529
  Serious: Yes (Death, Hospitalization)
  Sender: FDA-Public Use
  Company Number: PHHY2013US088571

PATIENT
  Age: 45 Year
  Sex: Female

DRUGS (2)
  1. CITALOPRAM [Suspect]
     Active Substance: CITALOPRAM HYDROBROMIDE
     Indication: PRODUCT USED FOR UNKNOWN INDICATION
     Dosage: UNK UKN, UNK
     Route: 065
  2. DIHYDROERGOTAMINE [Suspect]
     Active Substance: DIHYDROERGOTAMINE
     Indication: STATUS MIGRAINOSUS
     Route: 042

REACTIONS (6)
  - Cerebrovascular disorder [Fatal]
  - Vasculitis [Fatal]
  - Confusional state [Fatal]
  - Reversible cerebral vasoconstriction syndrome [Fatal]
  - Cerebral infarction [Unknown]
  - Intracranial pressure increased [Fatal]
